FAERS Safety Report 25312732 (Version 1)
Quarter: 2025Q2

REPORT INFORMATION
  Report Type: Spontaneous
  Country: US (occurrence: None)
  Receive Date: 20250513
  Receipt Date: 20250513
  Transmission Date: 20250717
  Serious: Yes (Hospitalization)
  Sender: FDA-CTU
  Company Number: None

PATIENT
  Age: 66 Year
  Sex: Female
  Weight: 62.95 kg

DRUGS (9)
  1. OXALIPLATIN [Suspect]
     Active Substance: OXALIPLATIN
     Indication: Uterine cancer
     Route: 042
     Dates: start: 20250408, end: 20250513
  2. OXALIPLATIN [Suspect]
     Active Substance: OXALIPLATIN
     Indication: Uterine cancer
     Route: 042
     Dates: start: 20250408, end: 20250513
  3. LEUCOVORIN [Concomitant]
     Active Substance: LEUCOVORIN\LEUCOVORIN CALCIUM
     Dates: start: 20250408
  4. IRINOTECAN [Concomitant]
     Active Substance: IRINOTECAN
     Dates: start: 20250408
  5. FLUOROURACIL [Concomitant]
     Active Substance: FLUOROURACIL
     Dates: start: 20250408
  6. CINVANTI [Concomitant]
     Active Substance: APREPITANT
     Dates: start: 20250408
  7. DEXAMETHASONE [Concomitant]
     Active Substance: DEXAMETHASONE
     Dates: start: 20250408
  8. BENADRYL [Concomitant]
     Active Substance: DIPHENHYDRAMINE HYDROCHLORIDE
     Dates: start: 20250408
  9. ALOXI [Concomitant]
     Active Substance: PALONOSETRON HYDROCHLORIDE
     Dates: start: 20250408

REACTIONS (2)
  - Paraesthesia oral [None]
  - Unresponsive to stimuli [None]

NARRATIVE: CASE EVENT DATE: 20250513
